FAERS Safety Report 15760841 (Version 1)
Quarter: 2018Q4

REPORT INFORMATION
  Report Type: Spontaneous
  Country: US (occurrence: US)
  Receive Date: 20181226
  Receipt Date: 20181226
  Transmission Date: 20190205
  Serious: Yes (Death)
  Sender: FDA-Public Use
  Company Number: None

PATIENT
  Sex: Male

DRUGS (1)
  1. QUETIAPINE FUMARATE TABLETS [Suspect]
     Active Substance: QUETIAPINE FUMARATE

REACTIONS (1)
  - Death [None]
